FAERS Safety Report 5362776-9 (Version None)
Quarter: 2007Q2

REPORT INFORMATION
  Report Type: 
  Country: None (occurrence: None)
  Receive Date: 20070619
  Receipt Date: 20070608
  Transmission Date: 20071010
  Serious: Yes (Other)
  Sender: FDA-Public Use
  Company Number: US-PFIZER INC-2007047709

PATIENT

DRUGS (1)
  1. BEXTRA [Suspect]
     Route: 048
     Dates: start: 20000131, end: 20031130

REACTIONS (3)
  - CEREBROVASCULAR ACCIDENT [None]
  - CHEST PAIN [None]
  - DEEP VEIN THROMBOSIS [None]
